FAERS Safety Report 6795937-2 (Version None)
Quarter: 2010Q2

REPORT INFORMATION
  Report Type: 
  Country: None (occurrence: None)
  Receive Date: 20100625
  Receipt Date: 20100615
  Transmission Date: 20101027
  Serious: Yes (Life-Threatening, Hospitalization)
  Sender: FDA-Public Use
  Company Number: B0660685A

PATIENT
  Sex: Male

DRUGS (2)
  1. ZYBAN [Suspect]
     Indication: DRUG USE FOR UNKNOWN INDICATION
     Route: 048
     Dates: start: 20100414, end: 20100524
  2. ALCOHOL [Concomitant]
     Route: 048
     Dates: start: 20100524, end: 20100524

REACTIONS (5)
  - CLONUS [None]
  - DYSSTASIA [None]
  - INTENTIONAL OVERDOSE [None]
  - TACHYCARDIA [None]
  - TREMOR [None]
